FAERS Safety Report 19078440 (Version 1)
Quarter: 2021Q1

REPORT INFORMATION
  Report Type: Spontaneous
  Country: US (occurrence: US)
  Receive Date: 20210331
  Receipt Date: 20210331
  Transmission Date: 20210420
  Serious: No
  Sender: FDA-Public Use
  Company Number: None

PATIENT
  Age: 60 Year
  Sex: Female
  Weight: 101.9 kg

DRUGS (7)
  1. GABAPENTIN. [Concomitant]
     Active Substance: GABAPENTIN
  2. LEVOTHYROXINE. [Concomitant]
     Active Substance: LEVOTHYROXINE
  3. OMEPRAZOLE. [Concomitant]
     Active Substance: OMEPRAZOLE
  4. VITAMIN D [Concomitant]
     Active Substance: VITAMIN D NOS
  5. DULOXETINE. [Concomitant]
     Active Substance: DULOXETINE
  6. LABETOLOL [Concomitant]
     Active Substance: LABETALOL HYDROCHLORIDE
  7. PIQRAY [Suspect]
     Active Substance: ALPELISIB
     Indication: METASTASES TO LYMPH NODES
     Route: 048
     Dates: start: 20210304, end: 20210331

REACTIONS (1)
  - Hospitalisation [None]

NARRATIVE: CASE EVENT DATE: 20210331
